FAERS Safety Report 7166831-2 (Version None)
Quarter: 2010Q4

REPORT INFORMATION
  Report Type: 
  Country: None (occurrence: None)
  Receive Date: 20101216
  Receipt Date: 20101208
  Transmission Date: 20110411
  Serious: Yes (Death, Hospitalization)
  Sender: FDA-Public Use
  Company Number: US-ROCHE-748205

PATIENT
  Age: 47 Year
  Sex: Female

DRUGS (3)
  1. BEVACIZUMAB [Suspect]
     Indication: OVARIAN CANCER
     Dosage: OVER 30-90 MINUTES ON DAY 1. LAST DOSE PRIOR TO SAE ON 23 AUGUST 2010.
     Route: 042
     Dates: start: 20100614
  2. PACLITAXEL [Suspect]
     Indication: OVARIAN CANCER
     Dosage: OVER 1 HOUR ON DAY 1, 8 + 15.  LAST DOSE PRIOR TO SAE ON 23 AUGUST 2010.
     Route: 042
     Dates: start: 20100614
  3. CARBOPLATIN [Suspect]
     Indication: OVARIAN CANCER
     Dosage: DOSE: 6 AUC ON DAY 1. LAST DOSE PRIOR TO SAE ON 23 AUGUST 2010.
     Route: 033
     Dates: start: 20100614

REACTIONS (4)
  - ACUTE RESPIRATORY DISTRESS SYNDROME [None]
  - ACUTE RESPIRATORY FAILURE [None]
  - PLEURAL EFFUSION [None]
  - RENAL FAILURE ACUTE [None]
